FAERS Safety Report 7414215-1 (Version None)
Quarter: 2011Q2

REPORT INFORMATION
  Report Type: 
  Country: None (occurrence: None)
  Receive Date: 20110411
  Receipt Date: 20110411
  Transmission Date: 20111010
  Serious: No
  Sender: FDA-Public Use
  Company Number: None

PATIENT
  Age: 53 Year
  Sex: Female

DRUGS (2)
  1. AZITHROMYCIN [Suspect]
     Dosage: 500 MG/D X 1, 250 MG/D X 4
     Dates: start: 20091110, end: 20091115
  2. BACLOFEN [Suspect]
     Dosage: 10 MG PO BID
     Dates: start: 20091201, end: 20091208

REACTIONS (10)
  - BACK PAIN [None]
  - LIVER DISORDER [None]
  - NAUSEA [None]
  - BLOOD ALKALINE PHOSPHATASE INCREASED [None]
  - CHOLELITHIASIS [None]
  - ABDOMINAL PAIN [None]
  - VOMITING [None]
  - ALANINE AMINOTRANSFERASE INCREASED [None]
  - PAIN IN EXTREMITY [None]
  - ASPARTATE AMINOTRANSFERASE INCREASED [None]
